FAERS Safety Report 10336624 (Version 1)
Quarter: 2014Q3

REPORT INFORMATION
  Report Type: Spontaneous
  Country: US (occurrence: US)
  Receive Date: 20140723
  Receipt Date: 20140723
  Transmission Date: 20150326
  Serious: Yes (Hospitalization)
  Sender: FDA-Public Use
  Company Number: US-BRISTOL-MYERS SQUIBB COMPANY-20572434

PATIENT
  Age: 83 Year
  Sex: Male

DRUGS (2)
  1. WARFARIN SODIUM. [Suspect]
     Active Substance: WARFARIN SODIUM
     Indication: COAGULOPATHY
     Route: 048
  2. COUMADINE [Suspect]
     Active Substance: WARFARIN SODIUM

REACTIONS (2)
  - International normalised ratio increased [Not Recovered/Not Resolved]
  - Haemarthrosis [Not Recovered/Not Resolved]
